FAERS Safety Report 9700873 (Version 2)
Quarter: 2013Q4

REPORT INFORMATION
  Report Type: Spontaneous
  Country: US (occurrence: US)
  Receive Date: 20131121
  Receipt Date: 20131227
  Transmission Date: 20140711
  Serious: No
  Sender: FDA-Public Use
  Company Number: US-PFIZER INC-2013331229

PATIENT
  Age: 63 Year
  Sex: 0

DRUGS (4)
  1. GEODON [Suspect]
     Dosage: 60 UNK, UNK
     Route: 048
     Dates: start: 20120110
  2. XANAX LA [Concomitant]
     Dosage: 1 UNK, UNK
  3. CYMBALTA [Concomitant]
     Dosage: 60 UNK,UNK
  4. COGENTIN [Concomitant]
     Dosage: 1 UNK, AS NEEDED (1 TID PRN)

REACTIONS (2)
  - Increased tendency to bruise [Unknown]
  - Blood blister [Recovered/Resolved]
